FAERS Safety Report 7161109-5 (Version None)
Quarter: 2010Q4

REPORT INFORMATION
  Report Type: 
  Country: None (occurrence: None)
  Receive Date: 20101215
  Receipt Date: 20101206
  Transmission Date: 20110411
  Serious: Yes (Hospitalization)
  Sender: FDA-Public Use
  Company Number: US-BIOGENIDEC-2010BI040955

PATIENT
  Age: 45 Year
  Sex: Female

DRUGS (2)
  1. AVONEX [Suspect]
     Indication: MULTIPLE SCLEROSIS
     Route: 030
     Dates: start: 20040901, end: 20091201
  2. AVONEX [Suspect]
     Route: 030
     Dates: start: 20100301, end: 20100510

REACTIONS (3)
  - INCISION SITE INFECTION [None]
  - INTRACRANIAL ANEURYSM [None]
  - OSTEOMYELITIS [None]
